FAERS Safety Report 8428841-4 (Version None)
Quarter: 2012Q2

REPORT INFORMATION
  Report Type: 
  Country: None (occurrence: None)
  Receive Date: 20120612
  Receipt Date: 20120608
  Transmission Date: 20120825
  Serious: Yes (Life-Threatening, Other)
  Sender: FDA-Public Use
  Company Number: US-BAYER-2012-057499

PATIENT
  Age: 58 Year
  Sex: Female

DRUGS (1)
  1. MAGNEVIST [Suspect]
     Indication: NUCLEAR MAGNETIC RESONANCE IMAGING
     Dosage: 9 ML, ONCE
     Dates: start: 20120607, end: 20120607

REACTIONS (6)
  - RESPIRATORY ARREST [None]
  - LOSS OF CONSCIOUSNESS [None]
  - GENERALISED ERYTHEMA [None]
  - UNRESPONSIVE TO STIMULI [None]
  - HYPERSENSITIVITY [None]
  - CARDIAC ARREST [None]
